FAERS Safety Report 7940508-5 (Version None)
Quarter: 2011Q4

REPORT INFORMATION
  Report Type: 
  Country: None (occurrence: None)
  Receive Date: 20111114
  Receipt Date: 20110216
  Transmission Date: 20120403
  Serious: Yes (Hospitalization, Other)
  Sender: FDA-Public Use
  Company Number: 2011S1000088

PATIENT
  Age: 78 Year
  Sex: Female
  Weight: 94 kg

DRUGS (9)
  1. FERROUS SULFATE TAB [Concomitant]
  2. ESTROGENS [Concomitant]
  3. PROGESTERONE [Concomitant]
  4. CENTRUM /00554501/ [Concomitant]
  5. CUBICIN [Suspect]
     Indication: SEPSIS
     Dosage: 500 MG;QD;IV
     Route: 042
     Dates: start: 20110204, end: 20110214
  6. LOTREL [Concomitant]
  7. CUBICIN [Suspect]
  8. VANCOMYCIN [Concomitant]
  9. HYDROCHLOROTHIAZIDE [Concomitant]

REACTIONS (2)
  - RHABDOMYOLYSIS [None]
  - BLOOD CREATINE PHOSPHOKINASE INCREASED [None]
